FAERS Safety Report 4984852-2 (Version None)
Quarter: 2006Q2

REPORT INFORMATION
  Report Type: 
  Country: None (occurrence: None)
  Receive Date: 20060427
  Receipt Date: 20050406
  Transmission Date: 20061013
  Serious: Yes (Hospitalization, Disabling)
  Sender: FDA-Public Use
  Company Number: US-ROCHE-401080

PATIENT
  Age: 15 Year
  Sex: Male
  Weight: 78.5 kg

DRUGS (3)
  1. ACCUTANE [Suspect]
     Route: 048
     Dates: start: 19950524, end: 19951015
  2. ACCUTANE [Suspect]
     Route: 048
     Dates: start: 19960826, end: 19961115
  3. CEPHALEXIN [Concomitant]
     Route: 048
     Dates: start: 19950823

REACTIONS (43)
  - ALANINE AMINOTRANSFERASE INCREASED [None]
  - ALOPECIA [None]
  - ANGINA PECTORIS [None]
  - APHTHOUS STOMATITIS [None]
  - ASPARTATE AMINOTRANSFERASE INCREASED [None]
  - BLOOD ALKALINE PHOSPHATASE INCREASED [None]
  - BLOOD POTASSIUM INCREASED [None]
  - BLOOD TRIGLYCERIDES INCREASED [None]
  - CHEST PAIN [None]
  - COLITIS [None]
  - COLITIS ULCERATIVE [None]
  - DEPRESSION [None]
  - DIZZINESS [None]
  - DRUG INEFFECTIVE [None]
  - DRY SKIN [None]
  - EPISTAXIS [None]
  - EROSIVE OESOPHAGITIS [None]
  - FAECAL INCONTINENCE [None]
  - FATIGUE [None]
  - GAMMA-GLUTAMYLTRANSFERASE INCREASED [None]
  - GASTRIC ULCER [None]
  - GASTROINTESTINAL DISORDER [None]
  - GASTROOESOPHAGEAL REFLUX DISEASE [None]
  - HAEMATOCRIT INCREASED [None]
  - HAEMOGLOBIN INCREASED [None]
  - HIGH DENSITY LIPOPROTEIN DECREASED [None]
  - INFLAMMATORY BOWEL DISEASE [None]
  - INSOMNIA [None]
  - INTESTINAL HAEMORRHAGE [None]
  - IRRITABLE BOWEL SYNDROME [None]
  - LIP DRY [None]
  - MEAN PLATELET VOLUME DECREASED [None]
  - MULTI-ORGAN DISORDER [None]
  - MUSCULOSKELETAL PAIN [None]
  - OESOPHAGITIS [None]
  - ONYCHOMYCOSIS [None]
  - RECTAL HAEMORRHAGE [None]
  - RECTAL TENESMUS [None]
  - RED BLOOD CELL COUNT INCREASED [None]
  - SCAR [None]
  - SOMNOLENCE [None]
  - VERY LOW DENSITY LIPOPROTEIN INCREASED [None]
  - WEIGHT DECREASED [None]
